FAERS Safety Report 12124304 (Version 1)
Quarter: 2016Q1

REPORT INFORMATION
  Report Type: Spontaneous
  Country: US (occurrence: US)
  Receive Date: 20160229
  Receipt Date: 20160229
  Transmission Date: 20160526
  Serious: No
  Sender: FDA-Public Use
  Company Number: US-ASTRAZENECA-2016SE17532

PATIENT
  Age: 25295 Day
  Sex: Female
  Weight: 52.6 kg

DRUGS (4)
  1. RHINOCORT [Suspect]
     Active Substance: BUDESONIDE
     Indication: OROPHARYNGEAL PAIN
     Dosage: RHINOCORT OTC 32 MCG, TWO TIMES A DAY
     Route: 045
     Dates: start: 20160212
  2. RHINOCORT [Suspect]
     Active Substance: BUDESONIDE
     Indication: EAR PAIN
     Route: 045
  3. RHINOCORT [Suspect]
     Active Substance: BUDESONIDE
     Indication: OROPHARYNGEAL PAIN
     Route: 045
  4. RHINOCORT [Suspect]
     Active Substance: BUDESONIDE
     Indication: EAR PAIN
     Dosage: RHINOCORT OTC 32 MCG, TWO TIMES A DAY
     Route: 045
     Dates: start: 20160212

REACTIONS (3)
  - Off label use [Unknown]
  - Asthma [Not Recovered/Not Resolved]
  - Product use issue [Unknown]

NARRATIVE: CASE EVENT DATE: 20160212
